FAERS Safety Report 6083243-3 (Version None)
Quarter: 2009Q1

REPORT INFORMATION
  Report Type: 
  Country: None (occurrence: None)
  Receive Date: 20090213
  Receipt Date: 20090213
  Transmission Date: 20090719
  Serious: Yes (Hospitalization)
  Sender: FDA-Public Use
  Company Number: None

PATIENT
  Age: 72 Year
  Sex: Female
  Weight: 61.2 kg

DRUGS (7)
  1. DOCETAXEL [Suspect]
     Indication: NASAL SINUS CANCER
     Dosage: 75 MG/M SQUARED PER EVERY 3 WEEKS
  2. CISPLATIN [Suspect]
     Indication: NASAL SINUS CANCER
     Dosage: 75 MG/M SQUARED PER IV EVERY 3 WEEKS
  3. PROTONIX [Concomitant]
  4. MORPHINE [Concomitant]
  5. ZOFRAN [Concomitant]
  6. PHENERGAN [Concomitant]
  7. MAGNESIUM OXIDE [Concomitant]

REACTIONS (2)
  - ASTHENIA [None]
  - PRESYNCOPE [None]
